FAERS Safety Report 7062578-1 (Version None)
Quarter: 2010Q4

REPORT INFORMATION
  Report Type: 
  Country: None (occurrence: None)
  Receive Date: 20101026
  Receipt Date: 20091130
  Transmission Date: 20110411
  Serious: No
  Sender: FDA-Public Use
  Company Number: US-PFIZER INC-2009285070

PATIENT
  Sex: Female
  Weight: 52.2 kg

DRUGS (16)
  1. LIPITOR [Suspect]
     Indication: BLOOD CHOLESTEROL INCREASED
     Dosage: 20 MG, 1X/DAY
     Route: 048
     Dates: start: 20070401
  2. METOCLOPRAMIDE [Concomitant]
     Dosage: UNK
     Route: 048
  3. METOPROLOL [Concomitant]
     Dosage: UNK
     Route: 048
  4. NEXIUM [Concomitant]
     Route: 048
  5. ISOSORBIDE DINITRATE [Concomitant]
     Route: 048
  6. PLAVIX [Concomitant]
     Route: 048
  7. PREMARIN [Concomitant]
     Route: 048
  8. ALLOPURINOL [Concomitant]
     Route: 048
  9. FLEXERIL [Concomitant]
     Dosage: FREQUENCY: AS NEEDED,
     Route: 048
  10. ACETYLSALICYLIC ACID [Concomitant]
     Route: 048
  11. LORTAB [Concomitant]
     Dosage: FREQUENCY: AS NEEDED,
     Route: 048
  12. VICODIN [Concomitant]
     Dosage: FREQUENCY: AS NEEDED,
     Route: 048
  13. POLYSACCHARIDE-IRON COMPLEX [Concomitant]
     Dosage: UNK
     Route: 048
  14. SPIRONOLACTONE [Concomitant]
     Dosage: FREQUENCY: 2X/DAY,
     Route: 048
  15. VITAMIN D [Concomitant]
     Dosage: UNK
     Route: 048
  16. POTASSIUM CHLORIDE [Concomitant]
     Dosage: UNK
     Route: 048

REACTIONS (1)
  - ALOPECIA [None]
